FAERS Safety Report 9162031 (Version 3)
Quarter: 2013Q1

REPORT INFORMATION
  Report Type: Spontaneous
  Country: US (occurrence: None)
  Receive Date: 20130220
  Receipt Date: 20130225
  Transmission Date: 20140127
  Serious: Yes (Disabling)
  Sender: FDA-Public Use
  Company Number: AUR-APL-2013-01440

PATIENT
  Age: 73 Year
  Sex: Male
  Weight: 80.9 kg

DRUGS (4)
  1. SIMVASTATIN [Suspect]
     Indication: PRODUCT USED FOR UNKNOWN INDICATION
  2. DAKTARIN [Suspect]
     Indication: ORAL FUNGAL INFECTION
     Dosage: TOPICAL
     Route: 061
     Dates: start: 20120713, end: 20120720
  3. ATENOLOL (ATENOLOL) [Concomitant]
  4. RAMIPRIL (RAMIPRIL) [Concomitant]

REACTIONS (4)
  - Ocular myasthenia [None]
  - Eyelid ptosis [None]
  - Drug interaction [None]
  - Oral fungal infection [None]
